FAERS Safety Report 19050584 (Version 1)
Quarter: 2021Q1

REPORT INFORMATION
  Report Type: Spontaneous
  Country: US (occurrence: US)
  Receive Date: 20210323
  Receipt Date: 20210323
  Transmission Date: 20210420
  Serious: Yes (Hospitalization)
  Sender: FDA-Public Use
  Company Number: None

PATIENT
  Sex: Male

DRUGS (12)
  1. FENOFIBRATE. [Concomitant]
     Active Substance: FENOFIBRATE
  2. TRULICITY [Concomitant]
     Active Substance: DULAGLUTIDE
  3. PRILOSEC [Suspect]
     Active Substance: OMEPRAZOLE MAGNESIUM
  4. LOSARTAN  POT [Concomitant]
     Active Substance: LOSARTAN POTASSIUM
  5. PLAVIX [Concomitant]
     Active Substance: CLOPIDOGREL BISULFATE
  6. TESTOST CYP [Concomitant]
     Active Substance: TESTOSTERONE CYPIONATE
  7. TRESIBA FLEX [Concomitant]
  8. XIGDUO XR [Concomitant]
     Active Substance: DAPAGLIFLOZIN PROPANEDIOL\METFORMIN HYDROCHLORIDE
  9. REPATHA [Suspect]
     Active Substance: EVOLOCUMAB
     Indication: CHRONIC HEPATITIS C
     Dosage: ?          OTHER DOSE:1 PEN;?
     Route: 058
     Dates: start: 20201204
  10. PRALUENT [Concomitant]
     Active Substance: ALIROCUMAB
  11. AMLODIPINE [Concomitant]
     Active Substance: AMLODIPINE BESYLATE
  12. ASPIRIN. [Concomitant]
     Active Substance: ASPIRIN

REACTIONS (1)
  - Coronary arterial stent insertion [None]
